FAERS Safety Report 4692562-4 (Version None)
Quarter: 2005Q2

REPORT INFORMATION
  Report Type: 
  Country: None (occurrence: None)
  Receive Date: 20050617
  Receipt Date: 20050603
  Transmission Date: 20051028
  Serious: Yes (Other)
  Sender: FDA-Public Use
  Company Number: GBWYE716203JUN05

PATIENT
  Sex: Male

DRUGS (6)
  1. ENBREL [Suspect]
     Indication: JUVENILE ARTHRITIS
     Dosage: UNKNOWN
  2. REMICADE [Suspect]
     Indication: JUVENILE ARTHRITIS
     Dosage: UNKNOWN
  3. NAPROXEN [Suspect]
     Dosage: UNKNOWN
  4. ANTIINFLAMMATORY NOS [Suspect]
     Dosage: UNKNOWN
  5. CORTICOSTEROID NOS [Interacting]
     Dosage: UNKNOWN
  6. METHOTREXATE [Suspect]
     Route: 058

REACTIONS (9)
  - CAMPTODACTYLY ACQUIRED [None]
  - CUSHINGOID [None]
  - HIP DEFORMITY [None]
  - NAUSEA [None]
  - OSTEOPOROSIS [None]
  - PERICARDITIS [None]
  - PSEUDOPORPHYRIA [None]
  - SYNOVIAL DISORDER [None]
  - VOMITING [None]
